FAERS Safety Report 18175358 (Version 1)
Quarter: 2020Q3

REPORT INFORMATION
  Report Type: Spontaneous
  Country: US (occurrence: US)
  Receive Date: 20200820
  Receipt Date: 20200820
  Transmission Date: 20201103
  Serious: No
  Sender: FDA-Public Use
  Company Number: None

PATIENT
  Age: 49 Year
  Sex: Female
  Weight: 89 kg

DRUGS (8)
  1. IBRANCE [Suspect]
     Active Substance: PALBOCICLIB
     Indication: BREAST CANCER
     Dosage: ?          OTHER FREQUENCY:21 DAYS;?
     Route: 048
     Dates: start: 20200311, end: 20200820
  2. OXYCODONE [Concomitant]
     Active Substance: OXYCODONE
  3. ATIVAN [Concomitant]
     Active Substance: LORAZEPAM
  4. SSD [Concomitant]
     Active Substance: SILVER SULFADIAZINE
  5. EXEMESTANE. [Concomitant]
     Active Substance: EXEMESTANE
  6. MAGOX [Concomitant]
  7. MORPHINE [Concomitant]
     Active Substance: MORPHINE
  8. MULTIVITAMIN [Concomitant]
     Active Substance: VITAMINS

REACTIONS (1)
  - Disease progression [None]

NARRATIVE: CASE EVENT DATE: 20200820
